FAERS Safety Report 13998230 (Version 1)
Quarter: 2017Q3

REPORT INFORMATION
  Report Type: Report from Study
  Country: GB (occurrence: GB)
  Receive Date: 20170921
  Receipt Date: 20170921
  Transmission Date: 20171128
  Serious: Yes (Hospitalization)
  Sender: FDA-Public Use
  Company Number: PHHY2012GB138653

PATIENT
  Age: 56 Year
  Sex: Male
  Weight: 78.3 kg

DRUGS (9)
  1. LANSOPRAZOLE. [Concomitant]
     Active Substance: LANSOPRAZOLE
     Indication: ACHLORHYDRIA
     Dosage: 15 MG, PRN
     Route: 048
     Dates: start: 20100101, end: 20120919
  2. FERROUS SULFATE. [Concomitant]
     Active Substance: FERROUS SULFATE
     Indication: ANAEMIA
     Dosage: 200 MG, BID
     Route: 048
     Dates: start: 20120917
  3. PARACETAMOL [Concomitant]
     Active Substance: ACETAMINOPHEN
     Indication: PRODUCT USED FOR UNKNOWN INDICATION
     Route: 065
  4. VOTRIENT [Suspect]
     Active Substance: PAZOPANIB HYDROCHLORIDE
     Indication: RENAL CELL CARCINOMA
     Route: 065
  5. PROCHLORPERAZINE MALEATE. [Concomitant]
     Active Substance: PROCHLORPERAZINE MALEATE
     Indication: NAUSEA
     Dosage: 6 MG, BID
     Route: 048
     Dates: start: 20120905
  6. FLUCONAZOLE. [Concomitant]
     Active Substance: FLUCONAZOLE
     Indication: ANTIFUNGAL PROPHYLAXIS
     Dosage: 100 MG, QD
     Route: 048
     Dates: start: 20120920
  7. LOPERAMIDE [Concomitant]
     Active Substance: LOPERAMIDE
     Indication: DIARRHOEA
     Dosage: 2 MG, QD
     Route: 048
     Dates: start: 20120919, end: 20120920
  8. NYSTATIN. [Concomitant]
     Active Substance: NYSTATIN
     Indication: ANTIFUNGAL PROPHYLAXIS
     Dosage: 1 ML, QD
     Route: 048
     Dates: start: 20120918, end: 20120920
  9. RANITIDINE. [Concomitant]
     Active Substance: RANITIDINE
     Indication: ACHLORHYDRIA
     Dosage: 150 MG, BID
     Route: 048
     Dates: start: 20120908

REACTIONS (5)
  - Oropharyngeal pain [Unknown]
  - Vomiting [Recovered/Resolved]
  - Dysphagia [Unknown]
  - Pyrexia [Recovered/Resolved]
  - Oral candidiasis [Unknown]

NARRATIVE: CASE EVENT DATE: 20120908
